FAERS Safety Report 12409281 (Version 1)
Quarter: 2016Q2

REPORT INFORMATION
  Report Type: Spontaneous
  Country: IT (occurrence: IT)
  Receive Date: 20160526
  Receipt Date: 20160526
  Transmission Date: 20160815
  Serious: Yes (Hospitalization, Other)
  Sender: FDA-Public Use
  Company Number: IT-PFIZER INC-3278719

PATIENT
  Age: 58 Year
  Sex: Female

DRUGS (2)
  1. ZOLEDRONIC ACID [Suspect]
     Active Substance: ZOLEDRONIC ACID
     Dosage: 4 MG, EVERY 4 WEEKS
     Route: 042
     Dates: start: 2006, end: 2012
  2. ANASTROZOLE. [Concomitant]
     Active Substance: ANASTROZOLE
     Indication: AROMATASE INHIBITION THERAPY
     Dosage: UNK
     Dates: start: 2009

REACTIONS (2)
  - Oral cavity fistula [Recovering/Resolving]
  - Osteonecrosis of jaw [Recovering/Resolving]

NARRATIVE: CASE EVENT DATE: 2012
